FAERS Safety Report 20510785 (Version 5)
Quarter: 2022Q3

REPORT INFORMATION
  Report Type: Spontaneous
  Country: US (occurrence: US)
  Receive Date: 20220224
  Receipt Date: 20220815
  Transmission Date: 20221027
  Serious: No
  Sender: FDA-Public Use
  Company Number: US-GLAXOSMITHKLINE-US2022028902

PATIENT
  Age: 75 Year
  Sex: Female
  Weight: 67.13 kg

DRUGS (15)
  1. ZEJULA [Suspect]
     Active Substance: NIRAPARIB
     Indication: Ovarian cancer
     Dosage: 200 MG, QD (QPM)
     Dates: start: 20220207
  2. ZEJULA [Suspect]
     Active Substance: NIRAPARIB
     Dosage: 200 MG, QD
     Dates: end: 20220303
  3. ZEJULA [Suspect]
     Active Substance: NIRAPARIB
     Dosage: UNK (200MG QOD ALTERNATING WITH 100MG QOD)
     Dates: start: 20220317
  4. ZEJULA [Suspect]
     Active Substance: NIRAPARIB
     Dosage: 200 MG, QD
     Dates: start: 20220516
  5. ZEJULA [Suspect]
     Active Substance: NIRAPARIB
     Dosage: 200 MG, QD
  6. COMPAZINE [Concomitant]
     Active Substance: PROCHLORPERAZINE MALEATE
     Indication: Product used for unknown indication
     Dosage: 10 MG, QD (AND PRN)
  7. CITALOPRAM [Concomitant]
     Active Substance: CITALOPRAM HYDROBROMIDE
     Indication: Product used for unknown indication
     Dosage: 10 MG, QD
  8. ELIQUIS [Concomitant]
     Active Substance: APIXABAN
     Indication: Product used for unknown indication
     Dosage: 2.5 MG, QD
  9. ELIQUIS [Concomitant]
     Active Substance: APIXABAN
     Dosage: 2.5 MG, BID
  10. SIMVASTATIN [Concomitant]
     Active Substance: SIMVASTATIN
     Indication: Product used for unknown indication
     Dosage: 30 MG, QD
  11. COLACE [Concomitant]
     Active Substance: DOCUSATE SODIUM
     Indication: Product used for unknown indication
     Dosage: 100 MG, BID
  12. VITAMIN D3 [Concomitant]
     Active Substance: CHOLECALCIFEROL
     Indication: Product used for unknown indication
     Dosage: 2000 IU, QD
  13. FISH OIL [Concomitant]
     Active Substance: FISH OIL
     Indication: Product used for unknown indication
     Dosage: 4800 MG, QD
  14. VITAMIN B12 [Concomitant]
     Active Substance: CYANOCOBALAMIN
     Indication: Product used for unknown indication
     Dosage: 1000 UG, QD
  15. PEPCID [Concomitant]
     Active Substance: FAMOTIDINE
     Indication: Product used for unknown indication
     Dosage: 20 MG, QD

REACTIONS (19)
  - Frustration tolerance decreased [Unknown]
  - Confusional state [Unknown]
  - Cognitive disorder [Not Recovered/Not Resolved]
  - Platelet count decreased [Not Recovered/Not Resolved]
  - Petechiae [Not Recovered/Not Resolved]
  - Disorientation [Not Recovered/Not Resolved]
  - Fatigue [Not Recovered/Not Resolved]
  - Nausea [Recovering/Resolving]
  - Pruritus [Not Recovered/Not Resolved]
  - Blood pressure increased [Recovering/Resolving]
  - Blood creatinine abnormal [Unknown]
  - Bone pain [Unknown]
  - Retching [Recovered/Resolved]
  - Pain of skin [Not Recovered/Not Resolved]
  - Decreased activity [Unknown]
  - Arthralgia [Not Recovered/Not Resolved]
  - Headache [Not Recovered/Not Resolved]
  - Therapeutic response unexpected [Not Recovered/Not Resolved]
  - Off label use [Unknown]

NARRATIVE: CASE EVENT DATE: 20220201
